FAERS Safety Report 15476571 (Version 2)
Quarter: 2019Q1

REPORT INFORMATION
  Report Type: Spontaneous
  Country: US (occurrence: US)
  Receive Date: 20181009
  Receipt Date: 20190104
  Transmission Date: 20190417
  Serious: No
  Sender: FDA-Public Use
  Company Number: US-TEVA-2018-US-959963

PATIENT
  Age: 73 Year

DRUGS (20)
  1. CALCIUM 600/VITAMIN D3 600MG (1500MG) [Concomitant]
     Dosage: 1 DOSAGE FORMS DAILY;
     Route: 048
  2. NYSTATIN 100.000 UNIT/GRAM [Concomitant]
     Dosage: APPLIED TO AFFECTED AREAS
     Route: 061
  3. VITAMIN B12 1000MCG [Concomitant]
     Dosage: 1 DOSAGE FORMS DAILY;
     Route: 060
  4. MELATIN 3MG [Concomitant]
     Dosage: 1 DOSAGE FORMS DAILY; AT BEDTIME
     Route: 048
  5. AUSTEDO [Suspect]
     Active Substance: DEUTETRABENAZINE
     Dosage: 12 MILLIGRAM DAILY;
     Route: 048
  6. MAGNESIUM OXIDE 500MG [Concomitant]
  7. ZANTAC [Concomitant]
     Active Substance: RANITIDINE HYDROCHLORIDE
  8. BACLOFEN 10MG [Concomitant]
     Active Substance: BACLOFEN
     Dosage: 3 DOSAGE FORMS DAILY;
  9. XANAX [Concomitant]
     Active Substance: ALPRAZOLAM
     Dosage: 3 DOSAGE FORMS DAILY; AS NEEDED
     Route: 048
  10. LISINOPRIL. [Concomitant]
     Active Substance: LISINOPRIL
     Indication: RENAL DISORDER
     Dosage: 1 DOSAGE FORMS DAILY;
     Route: 048
  11. AUSTEDO [Suspect]
     Active Substance: DEUTETRABENAZINE
     Route: 065
  12. LEVOTHYROXINE 125MCG [Concomitant]
     Active Substance: LEVOTHYROXINE SODIUM
     Dosage: 1 DOSAGE FORMS DAILY;
     Route: 048
  13. SIMVASTATIN 40MG [Concomitant]
     Active Substance: SIMVASTATIN
     Dosage: 1  DAILY;
     Route: 048
  14. LEVEMIR FLEXTOUCH U-100 INSULIN 100 UNIT/ML SUBCUTANEOUS PEN [Concomitant]
     Dosage: DAILY DOSE: 14 UNITS
     Route: 057
  15. PANTOPRAZOLE 40MG [Concomitant]
     Active Substance: PANTOPRAZOLE SODIUM
     Dosage: 1 DOSAGE FORMS DAILY;
     Route: 048
  16. SERTRALINE [Concomitant]
     Active Substance: SERTRALINE HYDROCHLORIDE
     Dosage: 2 DOSAGE FORMS DAILY;
     Route: 048
  17. METOPROLOL SUCCINATE ER 50MG [Concomitant]
     Indication: CARDIAC DISORDER
     Dosage: 1 DOSAGE FORMS DAILY;
     Route: 048
  18. FLAVOXATE 100MG [Concomitant]
     Dosage: 2 DOSAGE FORMS DAILY;
     Route: 048
  19. GLIMEPIRIDE 4MG [Concomitant]
     Active Substance: GLIMEPIRIDE
     Dosage: 1 DOSAGE FORMS DAILY; WITH BREAKFAST
     Route: 048
  20. HYDROXYZINE HCL 25MG [Concomitant]
     Indication: PRURITUS
     Dosage: 4 DOSAGE FORMS DAILY; AS NEEDED
     Route: 048

REACTIONS (1)
  - Adverse event [Unknown]
